FAERS Safety Report 8236355 (Version 3)
Quarter: 2017Q1

REPORT INFORMATION
  Report Type: Report from Study
  Country: US (occurrence: US)
  Receive Date: 20111108
  Receipt Date: 20170130
  Transmission Date: 20170429
  Serious: Yes (Hospitalization, Other)
  Sender: FDA-Public Use
  Company Number: US-ACTELION-A-US2011-56445

PATIENT
  Age: 75 Year
  Sex: Female
  Weight: 77.55 kg

DRUGS (7)
  1. POTASSIUM [Concomitant]
     Active Substance: POTASSIUM
  2. FUROSEMIDE. [Concomitant]
     Active Substance: FUROSEMIDE
  3. VITAMIN D [Concomitant]
     Active Substance: CHOLECALCIFEROL
  4. VITAMIN C [Concomitant]
     Active Substance: ASCORBIC ACID
  5. SPIRONOLACTON [Concomitant]
     Active Substance: SPIRONOLACTONE
  6. TRACLEER [Suspect]
     Active Substance: BOSENTAN
     Indication: PULMONARY ARTERIAL HYPERTENSION
     Dosage: 125 MG, BID
     Route: 048
     Dates: start: 20030128
  7. REVATIO [Concomitant]
     Active Substance: SILDENAFIL CITRATE

REACTIONS (3)
  - Invasive ductal breast carcinoma [Recovered/Resolved]
  - Mastectomy [Recovered/Resolved]
  - Breast conserving surgery [Recovered/Resolved]

NARRATIVE: CASE EVENT DATE: 20110505
